FAERS Safety Report 8401375-9 (Version None)
Quarter: 2012Q2

REPORT INFORMATION
  Report Type: 
  Country: None (occurrence: None)
  Receive Date: 20120601
  Receipt Date: 20120524
  Transmission Date: 20120825
  Serious: Yes (Life-Threatening, Hospitalization, Other)
  Sender: FDA-Public Use
  Company Number: JP-CELGENEUS-087-21880-12052783

PATIENT

DRUGS (6)
  1. REVLIMID [Suspect]
     Indication: MULTIPLE MYELOMA
     Dosage: 7.5 MILLIGRAM
     Route: 048
     Dates: start: 20120306
  2. ANTIBIOTICS [Concomitant]
     Route: 065
  3. DEXAMETHASONE ACETATE [Suspect]
     Route: 048
  4. B-BLOCKER [Concomitant]
     Route: 065
  5. REVLIMID [Suspect]
     Route: 048
     Dates: end: 20120521
  6. DEXAMETHASONE ACETATE [Suspect]
     Indication: MULTIPLE MYELOMA
     Route: 048
     Dates: start: 20120306

REACTIONS (1)
  - ATRIOVENTRICULAR BLOCK COMPLETE [None]
